FAERS Safety Report 16960539 (Version 2)
Quarter: 2019Q4

REPORT INFORMATION
  Report Type: Spontaneous
  Country: PR (occurrence: PR)
  Receive Date: 20191025
  Receipt Date: 20191112
  Transmission Date: 20200122
  Serious: No
  Sender: FDA-Public Use
  Company Number: PR-PFIZER INC-2019461785

PATIENT
  Sex: Female

DRUGS (1)
  1. PREMARIN [Suspect]
     Active Substance: ESTROGENS, CONJUGATED
     Indication: ATROPHIC VULVOVAGINITIS
     Dosage: UNK, 1X/DAY (APPLY PER VAGINA AT BEDTIME)
     Route: 067

REACTIONS (3)
  - Off label use [Unknown]
  - Hypoacusis [Unknown]
  - Uterine prolapse [Unknown]
